FAERS Safety Report 6590138-5 (Version None)
Quarter: 2010Q1

REPORT INFORMATION
  Report Type: 
  Country: None (occurrence: None)
  Receive Date: 20100219
  Receipt Date: 20100211
  Transmission Date: 20100710
  Serious: Yes (Hospitalization)
  Sender: FDA-Public Use
  Company Number: FR-ASTRAZENECA-2010SE06137

PATIENT
  Age: 31701 Day
  Sex: Male

DRUGS (14)
  1. SYMBICORT [Suspect]
     Dosage: LONG LASTING
     Route: 055
     Dates: end: 20080909
  2. THEOSTAT [Suspect]
     Dosage: LONG LASTING
     Route: 048
     Dates: end: 20080909
  3. EPINITRIL [Suspect]
     Dosage: LONG LASTING
     Route: 048
     Dates: end: 20080911
  4. SPIRIVA [Suspect]
     Dosage: LONG LASTING
     Route: 048
     Dates: end: 20080909
  5. FUROSEMIDE [Suspect]
     Dosage: LONG LASTING
     Route: 065
  6. RISPERDAL [Suspect]
     Dosage: LONG LASTING
     Route: 048
  7. NEXIUM [Concomitant]
     Dosage: LONG LASTING
     Route: 048
  8. CASODEX [Concomitant]
     Dosage: LONG LASTING
     Route: 048
  9. HEMIGOXINE NATIVELLE [Concomitant]
     Dosage: LONG LASTING
     Route: 065
  10. SINGULAIR [Concomitant]
     Dosage: LONG LASTING
     Route: 065
  11. TADENAN [Concomitant]
     Dosage: LONG LASTING
     Route: 065
  12. INSULATARD [Concomitant]
     Dosage: LONG LASTING
     Route: 065
  13. CACIT [Concomitant]
     Dosage: LONG LASTING
     Route: 065
  14. FORLAX [Concomitant]
     Dosage: LONG LASTING
     Route: 065

REACTIONS (1)
  - FALL [None]
